FAERS Safety Report 7424879-4 (Version None)
Quarter: 2011Q2

REPORT INFORMATION
  Report Type: 
  Country: None (occurrence: None)
  Receive Date: 20110419
  Receipt Date: 20110412
  Transmission Date: 20111010
  Serious: Yes (Hospitalization, Other)
  Sender: FDA-Public Use
  Company Number: US-MERCK-1102USA01523

PATIENT
  Age: 57 Year
  Sex: Female

DRUGS (8)
  1. FOSAMAX [Suspect]
     Indication: OSTEOPOROSIS
     Route: 048
     Dates: start: 19950101, end: 20090101
  2. CALCIUM (UNSPECIFIED) [Concomitant]
     Route: 048
  3. ASCORBIC ACID [Concomitant]
     Route: 048
  4. PREDNISONE [Concomitant]
     Indication: ARTHRITIS
     Route: 048
  5. DICLOFENAC [Concomitant]
     Indication: ARTHRITIS
     Route: 048
  6. [THERAPY UNSPECIFIED] [Concomitant]
     Indication: HYPERCHOLESTEROLAEMIA
     Route: 048
     Dates: start: 20030101
  7. DICLOFENAC [Concomitant]
     Indication: INFLAMMATION
     Route: 048
  8. VITAMIN D (UNSPECIFIED) [Concomitant]
     Route: 048

REACTIONS (8)
  - FEMUR FRACTURE [None]
  - LIMB DEFORMITY [None]
  - BONE DISORDER [None]
  - DEVICE FAILURE [None]
  - STAPHYLOCOCCAL INFECTION [None]
  - HYPERTENSION [None]
  - LOW TURNOVER OSTEOPATHY [None]
  - ADVERSE EVENT [None]
